FAERS Safety Report 12161780 (Version 1)
Quarter: 2016Q1

REPORT INFORMATION
  Report Type: Spontaneous
  Country: US (occurrence: US)
  Receive Date: 20160309
  Receipt Date: 20160309
  Transmission Date: 20160526
  Serious: No
  Sender: FDA-Public Use
  Company Number: US-AMGEN-USASP2016026981

PATIENT
  Age: 31 Year
  Sex: Female

DRUGS (3)
  1. METFORMIN [Concomitant]
     Active Substance: METFORMIN HYDROCHLORIDE
  2. ENBREL [Suspect]
     Active Substance: ETANERCEPT
     Indication: HIDRADENITIS
     Dosage: 50 MG, QWK
     Route: 058
     Dates: start: 2015
  3. LEVONORGESTREL. [Concomitant]
     Active Substance: LEVONORGESTREL
     Dosage: UNK

REACTIONS (2)
  - Hidradenitis [Unknown]
  - Off label use [Unknown]

NARRATIVE: CASE EVENT DATE: 2015
